FAERS Safety Report 5331677-4 (Version None)
Quarter: 2007Q2

REPORT INFORMATION
  Report Type: 
  Country: None (occurrence: None)
  Receive Date: 20070522
  Receipt Date: 20070515
  Transmission Date: 20071010
  Serious: Yes (Other)
  Sender: FDA-Public Use
  Company Number: GB-MERCK-0705USA03048

PATIENT
  Age: 48 Year
  Sex: Female
  Weight: 83 kg

DRUGS (1)
  1. PRINIVIL [Suspect]
     Indication: HYPERTENSION
     Route: 048
     Dates: start: 20070420, end: 20070428

REACTIONS (1)
  - LETHARGY [None]
